FAERS Safety Report 5761189-5 (Version None)
Quarter: 2008Q2

REPORT INFORMATION
  Report Type: 
  Country: None (occurrence: None)
  Receive Date: 20080606
  Receipt Date: 20080603
  Transmission Date: 20081010
  Serious: Yes (Death)
  Sender: FDA-Public Use
  Company Number: B0523610A

PATIENT
  Age: 72 Year
  Sex: Female

DRUGS (6)
  1. COROPRES [Suspect]
     Indication: HYPERTENSION
     Route: 048
     Dates: start: 20080101, end: 20080308
  2. ENALAPRIL MALEATE [Concomitant]
  3. COAPROVEL [Concomitant]
  4. HIDROSALURETIL [Concomitant]
  5. BESITRAN [Concomitant]
  6. ZANTAC [Concomitant]

REACTIONS (1)
  - ATRIOVENTRICULAR BLOCK [None]
